FAERS Safety Report 10385488 (Version 2)
Quarter: 2014Q3

REPORT INFORMATION
  Report Type: Spontaneous
  Country: FR (occurrence: None)
  Receive Date: 20140812
  Receipt Date: 20140818
  Transmission Date: 20150326
  Serious: Yes (Hospitalization)
  Sender: FDA-Public Use
  Company Number: 2014FR003504

PATIENT
  Age: 54 Year
  Sex: Female

DRUGS (1)
  1. ICLUSIG [Suspect]
     Active Substance: PONATINIB
     Indication: CHRONIC MYELOID LEUKAEMIA
     Route: 048
     Dates: start: 20120821, end: 20131030

REACTIONS (4)
  - Conjunctival haemorrhage [None]
  - Oedema peripheral [None]
  - Retinal vein occlusion [None]
  - Hypertension [None]

NARRATIVE: CASE EVENT DATE: 20140613
